FAERS Safety Report 6494287-1 (Version None)
Quarter: 2009Q4

REPORT INFORMATION
  Report Type: 
  Country: None (occurrence: None)
  Receive Date: 20091214
  Receipt Date: 20090130
  Transmission Date: 20100525
  Serious: No
  Sender: FDA-Public Use
  Company Number: US-BRISTOL-MYERS SQUIBB COMPANY-14491831

PATIENT
  Age: 16 Year
  Sex: Female

DRUGS (11)
  1. ABILIFY [Suspect]
     Indication: AFFECTIVE DISORDER
  2. ACYCLOVIR [Concomitant]
  3. FLUCONAZOLE [Concomitant]
  4. QUINAPRIL [Concomitant]
  5. LABETALOL HCL [Concomitant]
  6. ZOLOFT [Concomitant]
  7. STRATTERA [Concomitant]
  8. ZYRTEC [Concomitant]
  9. CLONIDINE [Concomitant]
  10. PROGRAF [Concomitant]
  11. IRON SUPPLEMENT [Concomitant]

REACTIONS (2)
  - HALLUCINATION [None]
  - ILLUSION [None]
